FAERS Safety Report 9165269 (Version 2)
Quarter: 2013Q2

REPORT INFORMATION
  Report Type: Spontaneous
  Country: IE (occurrence: IE)
  Receive Date: 20130315
  Receipt Date: 20130403
  Transmission Date: 20140414
  Serious: Yes (Death, Hospitalization, Other)
  Sender: FDA-Public Use
  Company Number: IE-ELI_LILLY_AND_COMPANY-IE201303001859

PATIENT
  Age: 84 Year
  Sex: Female

DRUGS (10)
  1. FORSTEO [Suspect]
     Indication: OSTEOPOROSIS
     Dosage: 20 UG, UNK
     Route: 058
     Dates: start: 20130226
  2. STEMETIL [Concomitant]
  3. PARACETAMOL [Concomitant]
  4. SALBUTAMOL [Concomitant]
  5. LACTULOSE [Concomitant]
  6. VERSATIS [Concomitant]
  7. TARGIN [Concomitant]
  8. MOTILIUM [Concomitant]
  9. CALCICHEW D3 [Concomitant]
  10. LEXAPRO [Concomitant]

REACTIONS (2)
  - Death [Fatal]
  - Humerus fracture [Not Recovered/Not Resolved]
